FAERS Safety Report 8831781 (Version 2)
Quarter: 2015Q3

REPORT INFORMATION
  Report Type: Report from Study
  Country: US (occurrence: US)
  Receive Date: 20121009
  Receipt Date: 20150818
  Transmission Date: 20151125
  Serious: Yes (Death)
  Sender: FDA-Public Use
  Company Number: US-ROCHE-1142946

PATIENT
  Age: 65 Year
  Sex: Male

DRUGS (7)
  1. BENADRYL [Concomitant]
     Active Substance: DIPHENHYDRAMINE HYDROCHLORIDE
     Route: 065
  2. RITUXAN [Suspect]
     Active Substance: RITUXIMAB
     Route: 042
  3. BENADRYL [Concomitant]
     Active Substance: DIPHENHYDRAMINE HYDROCHLORIDE
     Route: 065
  4. RITUXAN [Suspect]
     Active Substance: RITUXIMAB
     Route: 042
  5. RITUXAN [Suspect]
     Active Substance: RITUXIMAB
     Indication: CHRONIC LYMPHOCYTIC LEUKAEMIA
     Route: 042
     Dates: start: 19991213
  6. RITUXAN [Suspect]
     Active Substance: RITUXIMAB
     Route: 042
     Dates: start: 19991230
  7. RITUXAN [Suspect]
     Active Substance: RITUXIMAB
     Route: 042

REACTIONS (10)
  - Death [Fatal]
  - Oropharyngeal pain [Recovered/Resolved]
  - Haemorrhage [Unknown]
  - Fatigue [Unknown]
  - Cough [Unknown]
  - Asthenia [Unknown]
  - Pyrexia [Unknown]
  - Respiratory tract infection [Unknown]
  - Dizziness [Unknown]
  - Contusion [Unknown]

NARRATIVE: CASE EVENT DATE: 20000612
